FAERS Safety Report 9395794 (Version 1)
Quarter: 2013Q3

REPORT INFORMATION
  Report Type: Spontaneous
  Country: US (occurrence: US)
  Receive Date: 20130711
  Receipt Date: 20130711
  Transmission Date: 20140515
  Serious: No
  Sender: FDA-Public Use
  Company Number: US-COVIDIEN/TYCO HEALTHCARE/MALLINCKRODT-T201203169

PATIENT
  Age: 53 Year
  Sex: Male
  Weight: 99.77 kg

DRUGS (4)
  1. OXYCODONE/ACETAMINOPHEN [Suspect]
     Indication: BACK PAIN
     Dosage: ONE TABLET Q 6 HRS PRN
     Dates: start: 2002
  2. SEROQUEL [Concomitant]
     Indication: DEPRESSION
  3. PRISTIQ [Concomitant]
     Indication: DEPRESSION
  4. MIRAPEX [Concomitant]
     Indication: RESTLESS LEGS SYNDROME

REACTIONS (1)
  - Drug screen negative [Not Recovered/Not Resolved]
